FAERS Safety Report 4414979-5 (Version None)
Quarter: 2004Q3

REPORT INFORMATION
  Report Type: 
  Country: None (occurrence: None)
  Receive Date: 20040803
  Receipt Date: 20040803
  Transmission Date: 20050211
  Serious: Yes (Hospitalization)
  Sender: FDA-Public Use
  Company Number: None

PATIENT
  Age: 64 Year
  Sex: Male
  Weight: 103 kg

DRUGS (1)
  1. AMIODARONE HCL [Suspect]
     Dosage: 400MG  BID  ORAL
     Route: 048
     Dates: start: 20030821, end: 20040329

REACTIONS (1)
  - PULMONARY TOXICITY [None]
